FAERS Safety Report 10250075 (Version 2)
Quarter: 2014Q3

REPORT INFORMATION
  Report Type: Spontaneous
  Country: US (occurrence: None)
  Receive Date: 20140618
  Receipt Date: 20140912
  Transmission Date: 20150326
  Serious: Yes (Death)
  Sender: FDA-Public Use
  Company Number: US-H14001-14-00056

PATIENT
  Age: 51 Year
  Sex: Male

DRUGS (2)
  1. INFUMORPH [Suspect]
     Active Substance: MORPHINE SULFATE
     Indication: SPINAL PAIN
     Dates: start: 20130219
  2. FENTANYL (FENTANYL) (FENTANYL) [Suspect]
     Active Substance: FENTANYL
     Indication: SPINAL PAIN
     Dosage: 1400 MCG/ML
     Dates: start: 20130219

REACTIONS (2)
  - Pancreatic carcinoma [None]
  - Death [None]

NARRATIVE: CASE EVENT DATE: 20140517
